FAERS Safety Report 8792688 (Version 1)
Quarter: 2012Q4

REPORT INFORMATION
  Report Type: 
  Country: GB (occurrence: GB)
  Receive Date: 20120918
  Receipt Date: 20120918
  Transmission Date: 20130627
  Serious: Yes (Hospitalization)
  Sender: FDA-Public Use
  Company Number: GB-JNJFOC-20120905143

PATIENT
  Sex: Female

DRUGS (1)
  1. GALANTAMINE HBR [Suspect]
     Indication: DEMENTIA ALZHEIMER^S TYPE
     Dosage: frequency unspecified
     Route: 048

REACTIONS (3)
  - Hallucination [Unknown]
  - Aggression [Unknown]
  - Abnormal behaviour [Unknown]
